FAERS Safety Report 8017582-3 (Version None)
Quarter: 2012Q1

REPORT INFORMATION
  Report Type: 
  Country: None (occurrence: None)
  Receive Date: 20120103
  Receipt Date: 20111221
  Transmission Date: 20120608
  Serious: Yes (Other)
  Sender: FDA-Public Use
  Company Number: DE-RANBAXY-2011RR-51491

PATIENT
  Age: 64 Year
  Sex: Male

DRUGS (3)
  1. GELAFUSAL [Suspect]
     Indication: HYPOVOLAEMIA
     Dosage: 200 ML, 12.50 UHR-12.55 UHR
  2. ROCURONIUM BROMIDE [Concomitant]
     Indication: PRODUCT USED FOR UNKNOWN INDICATION
  3. CEFUROXIME [Suspect]
     Indication: ANTIBIOTIC PROPHYLAXIS
     Dosage: 1500 MG, 12.30 UHR

REACTIONS (1)
  - ANAPHYLACTIC SHOCK [None]
